FAERS Safety Report 6758917-9 (Version None)
Quarter: 2010Q2

REPORT INFORMATION
  Report Type: 
  Country: None (occurrence: None)
  Receive Date: 20100607
  Receipt Date: 20100528
  Transmission Date: 20101027
  Serious: Yes (Other)
  Sender: FDA-Public Use
  Company Number: PHHY2010BR35088

PATIENT
  Age: 72 Year
  Sex: Female

DRUGS (1)
  1. ZELMAC [Suspect]
     Dosage: 1 TABLET PER DAY
     Route: 048

REACTIONS (2)
  - BLADDER NEOPLASM [None]
  - LIVER DISORDER [None]
